FAERS Safety Report 14621902 (Version 1)
Quarter: 2018Q1

REPORT INFORMATION
  Report Type: Spontaneous
  Country: DE (occurrence: DE)
  Receive Date: 20180311
  Receipt Date: 20180311
  Transmission Date: 20180509
  Serious: Yes (Other)
  Sender: FDA-Public Use
  Company Number: DE-AUROBINDO-AUR-APL-2018-013390

PATIENT
  Age: 65 Year
  Sex: Male
  Weight: 74 kg

DRUGS (2)
  1. RAMIPRIL. [Suspect]
     Active Substance: RAMIPRIL
     Indication: HYPERTENSION
     Dosage: HALF TABLET DAILY ()
  2. APYDAN DESITIN [Suspect]
     Active Substance: OXCARBAZEPINE
     Indication: TRIGEMINAL NEURALGIA
     Dosage: 150-0-150
     Route: 048
     Dates: start: 20170901, end: 20171115

REACTIONS (3)
  - Respiratory distress [Recovering/Resolving]
  - Breast pain [Recovering/Resolving]
  - Off label use [Recovered/Resolved]
